FAERS Safety Report 24733535 (Version 1)
Quarter: 2024Q4

REPORT INFORMATION
  Report Type: Spontaneous
  Country: US (occurrence: US)
  Receive Date: 20241213
  Receipt Date: 20241213
  Transmission Date: 20250115
  Serious: No
  Sender: NOVO NORDISK
  Company Number: US-NOVOPROD-1164020

PATIENT
  Age: 71 Year
  Sex: Female

DRUGS (3)
  1. LEVEMIR [Suspect]
     Active Substance: INSULIN DETEMIR
     Indication: Type 2 diabetes mellitus
     Dosage: 46 UNITS
     Route: 058
     Dates: start: 1991
  2. LEVEMIR [Suspect]
     Active Substance: INSULIN DETEMIR
     Dosage: 46 UNITS
     Route: 058
     Dates: start: 1991
  3. LEVEMIR [Suspect]
     Active Substance: INSULIN DETEMIR
     Dosage: 46 UNITS
     Route: 058
     Dates: start: 1991

REACTIONS (1)
  - Dizziness [Recovered/Resolved]

NARRATIVE: CASE EVENT DATE: 20240112
